FAERS Safety Report 12462963 (Version 1)
Quarter: 2016Q2

REPORT INFORMATION
  Report Type: Spontaneous
  Country: US (occurrence: US)
  Receive Date: 20160614
  Receipt Date: 20160614
  Transmission Date: 20160815
  Serious: No
  Sender: FDA-Public Use
  Company Number: US-JNJFOC-20160414524

PATIENT
  Age: 24 Year
  Sex: Female

DRUGS (13)
  1. TOPAMAX [Suspect]
     Active Substance: TOPIRAMATE
     Indication: PRODUCT USED FOR UNKNOWN INDICATION
     Route: 048
  2. COGENTIN [Concomitant]
     Active Substance: BENZTROPINE MESYLATE
     Route: 048
  3. SYNTHROID [Concomitant]
     Active Substance: LEVOTHYROXINE SODIUM
     Route: 048
  4. MELOXICAM. [Concomitant]
     Active Substance: MELOXICAM
     Route: 048
  5. TRINTELLIX [Concomitant]
     Active Substance: VORTIOXETINE HYDROBROMIDE
     Route: 048
  6. METOPROLOL. [Concomitant]
     Active Substance: METOPROLOL
     Route: 048
  7. CLARITIN [Concomitant]
     Active Substance: LORATADINE
     Route: 048
  8. DESMOPRESSIN [Concomitant]
     Active Substance: DESMOPRESSIN
     Route: 048
  9. KLONOPIN [Concomitant]
     Active Substance: CLONAZEPAM
     Route: 048
  10. VIMPAT [Concomitant]
     Active Substance: LACOSAMIDE
     Route: 048
  11. INVEGA TRINZA [Suspect]
     Active Substance: PALIPERIDONE PALMITATE
     Indication: PRODUCT USED FOR UNKNOWN INDICATION
     Route: 030
     Dates: start: 20160223, end: 20160223
  12. RISPERDAL [Suspect]
     Active Substance: RISPERIDONE
     Indication: PRODUCT USED FOR UNKNOWN INDICATION
     Route: 048
  13. LITHIUM. [Concomitant]
     Active Substance: LITHIUM
     Route: 048

REACTIONS (2)
  - Galactorrhoea [Not Recovered/Not Resolved]
  - Blood prolactin increased [Unknown]

NARRATIVE: CASE EVENT DATE: 2016
